FAERS Safety Report 24074308 (Version 2)
Quarter: 2024Q3

REPORT INFORMATION
  Report Type: Spontaneous
  Country: FR (occurrence: FR)
  Receive Date: 20240710
  Receipt Date: 20240910
  Transmission Date: 20241017
  Serious: Yes (Other)
  Sender: PFIZER
  Company Number: None

PATIENT
  Age: 73 Year
  Sex: Female
  Weight: 53 kg

DRUGS (13)
  1. RIFABUTIN [Interacting]
     Active Substance: RIFABUTIN
     Indication: Tuberculosis
     Dosage: UNK
  2. RIFAMPIN [Interacting]
     Active Substance: RIFAMPIN
     Indication: Tuberculosis
     Dosage: 10 MG/KG PER DAY
  3. RIFAMPIN [Interacting]
     Active Substance: RIFAMPIN
     Dosage: 900 MG PER DAY
     Route: 042
  4. RIFAMPIN [Interacting]
     Active Substance: RIFAMPIN
     Dosage: UNK
     Route: 048
  5. ISONIAZID [Concomitant]
     Active Substance: ISONIAZID
     Indication: Tuberculosis
     Dosage: 5 MG/KG PER DAY
  6. ISONIAZID [Concomitant]
     Active Substance: ISONIAZID
     Dosage: 250 MG PER DAY
     Route: 042
  7. PYRAZINAMIDE [Concomitant]
     Active Substance: PYRAZINAMIDE
     Indication: Tuberculosis
     Dosage: 30 MG/KG PER DAY
  8. PYRAZINAMIDE [Concomitant]
     Active Substance: PYRAZINAMIDE
     Dosage: 1500 MG PER DAY
     Route: 048
  9. ETHAMBUTOL [Concomitant]
     Active Substance: ETHAMBUTOL HYDROCHLORIDE
     Indication: Tuberculosis
     Dosage: 20 MG/KG PER DAY
  10. ETHAMBUTOL [Concomitant]
     Active Substance: ETHAMBUTOL HYDROCHLORIDE
     Dosage: 1200 MG PER DAY
     Route: 042
  11. PANTOPRAZOLE [Concomitant]
     Active Substance: PANTOPRAZOLE
     Indication: Escherichia infection
     Dosage: UNK
     Route: 042
  12. CEFIXIME [Concomitant]
     Active Substance: CEFIXIME
     Indication: Escherichia infection
     Dosage: UNK
     Route: 042
  13. MOXIFLOXACIN [Concomitant]
     Active Substance: MOXIFLOXACIN
     Indication: Tuberculosis
     Dosage: 400 MG PER DAY
     Route: 042

REACTIONS (3)
  - Drug interaction [Recovered/Resolved]
  - Cross sensitivity reaction [Recovered/Resolved]
  - Hyperbilirubinaemia [Recovered/Resolved]
